FAERS Safety Report 5980911-6 (Version None)
Quarter: 2008Q4

REPORT INFORMATION
  Report Type: 
  Country: None (occurrence: None)
  Receive Date: 20081205
  Receipt Date: 20080721
  Transmission Date: 20090506
  Serious: No
  Sender: FDA-Public Use
  Company Number: A0738561A

PATIENT
  Age: 62 Year
  Sex: Female

DRUGS (1)
  1. COMMIT [Suspect]
     Dates: start: 20080709, end: 20080709

REACTIONS (6)
  - BURNING SENSATION [None]
  - ORAL DISCOMFORT [None]
  - ORAL DISORDER [None]
  - OROPHARYNGEAL BLISTERING [None]
  - THERMAL BURN [None]
  - VOMITING [None]
